FAERS Safety Report 9351013 (Version 2)
Quarter: 2013Q3

REPORT INFORMATION
  Report Type: Report from Study
  Country: DE (occurrence: DE)
  Receive Date: 20130617
  Receipt Date: 20130917
  Transmission Date: 20140515
  Serious: Yes (Hospitalization)
  Sender: FDA-Public Use
  Company Number: DE-ROCHE-1234256

PATIENT
  Age: 36 Year
  Sex: Female
  Weight: 57 kg

DRUGS (41)
  1. MYCOPHENOLATE MOFETIL [Suspect]
     Indication: RENAL TRANSPLANT
     Dosage: DATE OF LAST DOSE PRIOR TO SAE: 08/NOV/2011
     Route: 048
     Dates: start: 20110103
  2. BASILIXIMAB [Suspect]
     Indication: RENAL TRANSPLANT
     Dosage: DATE OF LAST DOSE PRIOR TO SAE:07/JAN/2011
     Route: 048
     Dates: start: 20110103
  3. TACROLIMUS [Suspect]
     Indication: RENAL TRANSPLANT
     Dosage: DATE OF LAST DOSE PRIOR TO SAE: 28/SEP/2011
     Route: 048
     Dates: start: 20110103
  4. TACROLIMUS [Suspect]
     Indication: PROPHYLAXIS AGAINST TRANSPLANT REJECTION
     Route: 065
     Dates: start: 20111107
  5. EVEROLIMUS [Suspect]
     Indication: PROPHYLAXIS AGAINST TRANSPLANT REJECTION
     Route: 065
     Dates: start: 20110928, end: 20110928
  6. EVEROLIMUS [Suspect]
     Route: 065
     Dates: start: 20110929, end: 20111025
  7. EVEROLIMUS [Suspect]
     Route: 065
     Dates: start: 20111026, end: 20111105
  8. MYCOPHENOLATE SODIUM [Suspect]
     Indication: PROPHYLAXIS AGAINST TRANSPLANT REJECTION
     Route: 065
  9. PREDNISOLONE [Suspect]
     Indication: RENAL TRANSPLANT
     Dosage: DATE OF LAST DOSE PRIOR TO SAE: 09/JUN/2011
     Route: 048
     Dates: start: 20110103
  10. LISINOPRIL [Concomitant]
     Indication: HYPERTENSION
     Route: 065
     Dates: start: 20110215, end: 20110222
  11. AMLODIPINE [Concomitant]
     Indication: HYPERTENSION
     Route: 065
     Dates: start: 20110223, end: 20110511
  12. AMLODIPINE [Concomitant]
     Route: 065
     Dates: start: 20110110, end: 20110122
  13. PRAVASTATIN [Concomitant]
     Indication: HYPERCHOLESTEROLAEMIA
     Route: 065
     Dates: start: 20100818, end: 20110116
  14. LISODURA [Concomitant]
     Indication: HYPERTENSION
     Route: 065
     Dates: start: 20100818, end: 20110103
  15. ALLOPURINOL [Concomitant]
     Indication: HYPERURICAEMIA
     Route: 065
     Dates: start: 20100818, end: 20110103
  16. NEBILET [Concomitant]
     Indication: HYPERTENSION
     Route: 065
     Dates: start: 20111003, end: 20111031
  17. VALCYTE [Concomitant]
     Indication: ANTIVIRAL PROPHYLAXIS
     Route: 065
     Dates: start: 20110103
  18. COTRIM FORTE [Concomitant]
     Indication: ANTIFUNGAL PROPHYLAXIS
     Route: 065
     Dates: start: 20110103
  19. SAB SIMPLEX [Concomitant]
     Indication: FLATULENCE
     Dosage: DOSE: 25 OTHER
     Route: 065
     Dates: start: 20110105, end: 20110106
  20. SAB SIMPLEX [Concomitant]
     Dosage: DOSE: 25 OTHER
     Route: 065
     Dates: start: 20110108, end: 20110108
  21. DIPIDOLOR [Concomitant]
     Indication: WOUND COMPLICATION
     Route: 065
     Dates: start: 20110105, end: 20110105
  22. DIPIDOLOR [Concomitant]
     Route: 065
     Dates: start: 20110110, end: 20110110
  23. CLEXANE [Concomitant]
     Indication: THROMBOSIS PROPHYLAXIS
     Route: 065
     Dates: start: 20110105, end: 20110106
  24. CLEXANE [Concomitant]
     Route: 065
     Dates: start: 20110107, end: 20110123
  25. PANTOZOL (GERMANY) [Concomitant]
     Indication: PROPHYLAXIS
     Route: 065
     Dates: start: 20110105
  26. BICANORM [Concomitant]
     Indication: METABOLIC ACIDOSIS
     Route: 065
     Dates: start: 20111004, end: 20120209
  27. CIPROBAY (GERMANY) [Concomitant]
     Indication: FEBRILE INFECTION
     Route: 065
     Dates: start: 20111031, end: 20111031
  28. CIPROBAY (GERMANY) [Concomitant]
     Route: 065
     Dates: start: 20111101, end: 20111104
  29. CIPROBAY (GERMANY) [Concomitant]
     Route: 065
     Dates: start: 20111105, end: 20111105
  30. CIPROBAY (GERMANY) [Concomitant]
     Route: 065
     Dates: start: 20111105, end: 20111112
  31. CLONT (GERMANY) [Concomitant]
     Indication: FEBRILE INFECTION
     Route: 065
     Dates: start: 20111031, end: 20111031
  32. CLONT (GERMANY) [Concomitant]
     Route: 065
     Dates: start: 20111101, end: 20111103
  33. CLONT (GERMANY) [Concomitant]
     Route: 065
     Dates: start: 20110104, end: 20110104
  34. CLONT (GERMANY) [Concomitant]
     Route: 065
     Dates: start: 20110104, end: 20110104
  35. CLONT (GERMANY) [Concomitant]
     Route: 065
     Dates: start: 20110105, end: 20110112
  36. NEORECORMON [Concomitant]
     Indication: NEPHROGENIC ANAEMIA
     Route: 065
     Dates: start: 20110110, end: 20110615
  37. NEORECORMON [Concomitant]
     Route: 065
     Dates: start: 20110615
  38. FERRO SANOL DUODENAL [Concomitant]
     Indication: NEPHROGENIC ANAEMIA
     Route: 065
     Dates: start: 20110616, end: 20110927
  39. SOLU-DECORTIN [Concomitant]
     Route: 065
     Dates: start: 20110615, end: 20110615
  40. SOLU-DECORTIN [Concomitant]
     Route: 065
     Dates: start: 20110616, end: 20110617
  41. FOLSAN [Concomitant]
     Indication: FOLATE DEFICIENCY
     Route: 065
     Dates: start: 20110415, end: 20111025

REACTIONS (1)
  - Bladder transitional cell carcinoma [Recovered/Resolved]
